FAERS Safety Report 7685156 (Version 3)
Quarter: 2013Q1

REPORT INFORMATION
  Report Type: Spontaneous
  Country: AU (occurrence: AU)
  Receive Date: 20101129
  Receipt Date: 20130204
  Transmission Date: 20140127
  Serious: Yes (Death, Hospitalization, Other)
  Sender: FDA-Public Use
  Company Number: AU-ACTELION-A-CH2010-41678

PATIENT
  Age: 51 Year
  Sex: Female
  Weight: 55.4 kg

DRUGS (3)
  1. TRACLEER [Suspect]
     Indication: PULMONARY ARTERIAL HYPERTENSION
     Dosage: 125 MG, BID
     Route: 048
     Dates: start: 20080824, end: 20130124
  2. TRACLEER [Suspect]
     Dosage: 62.5 MG, BID
     Route: 048
     Dates: start: 20080724, end: 20080823
  3. SILDENAFIL [Concomitant]

REACTIONS (6)
  - Pulmonary arterial hypertension [Fatal]
  - Condition aggravated [Fatal]
  - Catheterisation cardiac [Fatal]
  - Breast cancer [Not Recovered/Not Resolved]
  - Breast lump removal [Not Recovered/Not Resolved]
  - Right ventricular dysfunction [Fatal]
